FAERS Safety Report 24257653 (Version 1)
Quarter: 2024Q3

REPORT INFORMATION
  Report Type: Spontaneous
  Country: FR (occurrence: FR)
  Receive Date: 20240828
  Receipt Date: 20240828
  Transmission Date: 20241016
  Serious: Yes (Other)
  Sender: AUROBINDO
  Company Number: FR-AFSSAPS-CN2024000703

PATIENT
  Age: 31 Year
  Sex: Female

DRUGS (57)
  1. CLOZAPINE [Suspect]
     Active Substance: CLOZAPINE
     Indication: Schizophrenia
     Dosage: 50 MILLIGRAM, ONCE A DAY (500 MG/DAY)
     Route: 048
     Dates: start: 20240104, end: 20240108
  2. CLOZAPINE [Suspect]
     Active Substance: CLOZAPINE
     Dosage: 100 MILLIGRAM, ONCE A DAY (100 MG/DAY)
     Route: 048
     Dates: start: 20240108, end: 20240112
  3. CLOZAPINE [Suspect]
     Active Substance: CLOZAPINE
     Dosage: 150 MILLIGRAM, ONCE A DAY (150 MG/DAY)
     Route: 048
     Dates: start: 20240112, end: 20240119
  4. CLOZAPINE [Suspect]
     Active Substance: CLOZAPINE
     Dosage: 200 MILLIGRAM, ONCE A DAY (200 MG/DAY)
     Route: 048
     Dates: start: 20240119, end: 20240426
  5. CLOZAPINE [Suspect]
     Active Substance: CLOZAPINE
     Dosage: 400 MILLIGRAM, ONCE A DAY (400 MG/DAY)
     Route: 048
     Dates: start: 20240514
  6. GABAPENTIN [Suspect]
     Active Substance: GABAPENTIN
     Indication: Neuralgia
     Dosage: 300 MILLIGRAM, ONCE A DAY (300 MG/D)
     Route: 048
     Dates: start: 20240213, end: 20240216
  7. GABAPENTIN [Suspect]
     Active Substance: GABAPENTIN
     Dosage: 600 MILLIGRAM, ONCE A DAY (600 MG/D)
     Route: 048
     Dates: start: 20240216, end: 20240221
  8. GABAPENTIN [Suspect]
     Active Substance: GABAPENTIN
     Dosage: 900 MILLIGRAM, ONCE A DAY (900 MG/D)
     Route: 048
     Dates: start: 20240221, end: 20240301
  9. GABAPENTIN [Suspect]
     Active Substance: GABAPENTIN
     Dosage: 1200 MILLIGRAM, ONCE A DAY (1200 MG/D)
     Route: 048
     Dates: start: 20240301, end: 20240405
  10. GABAPENTIN [Suspect]
     Active Substance: GABAPENTIN
     Dosage: 1500 MILLIGRAM, ONCE A DAY (1500 MG/D)
     Route: 048
     Dates: start: 20240405, end: 20240425
  11. GABAPENTIN [Suspect]
     Active Substance: GABAPENTIN
     Dosage: 1800 MILLIGRAM, ONCE A DAY (1800 MG/D)
     Route: 048
     Dates: start: 20240425, end: 20240619
  12. GABAPENTIN [Suspect]
     Active Substance: GABAPENTIN
     Dosage: 2400 MILLIGRAM, ONCE A DAY (2400 MG/D)
     Route: 048
     Dates: start: 20240619
  13. MORPHINE SULFATE [Suspect]
     Active Substance: MORPHINE SULFATE
     Indication: Pain
     Dosage: 5 MILLIGRAM, AS NECESSARY (5 MG IF NEEDED)
     Route: 048
     Dates: start: 20240112, end: 20240115
  14. MORPHINE SULFATE [Suspect]
     Active Substance: MORPHINE SULFATE
     Dosage: 5 MILLIGRAM, AS NECESSARY (5 MG IF NEEDED)
     Route: 048
     Dates: start: 20240514
  15. DUPHALAC [Suspect]
     Active Substance: LACTULOSE
     Indication: Constipation
     Dosage: 3 DOSAGE FORM, ONCE A DAY (3 SACHETS / DAY)
     Route: 048
     Dates: start: 20240322, end: 20240401
  16. DUPHALAC [Suspect]
     Active Substance: LACTULOSE
     Dosage: 1 DOSAGE FORM, AS NECESSARY (1 SACHET IF NEEDED)
     Route: 048
     Dates: start: 20240404, end: 20240405
  17. DUPHALAC [Suspect]
     Active Substance: LACTULOSE
     Dosage: 3 DOSAGE FORM, ONCE A DAY (3 SACHETS / DAY)
     Route: 048
     Dates: start: 20240405, end: 20240604
  18. DUPHALAC [Suspect]
     Active Substance: LACTULOSE
     Dosage: 2 DOSAGE FORM, ONCE A DAY (2 SACHETS / DAY)
     Route: 048
     Dates: start: 20240627
  19. FLUPENTIXOL [Suspect]
     Active Substance: FLUPENTIXOL
     Indication: Psychotic disorder
     Dosage: 30 MILLIGRAM, ONCE A DAY (30 MG/D)
     Route: 048
     Dates: start: 20240515, end: 20240529
  20. FLUPENTIXOL [Suspect]
     Active Substance: FLUPENTIXOL
     Dosage: 60 MILLIGRAM, ONCE A DAY (60 MG/D)
     Route: 048
     Dates: start: 20240529, end: 20240611
  21. FLUPENTIXOL [Suspect]
     Active Substance: FLUPENTIXOL
     Dosage: 80 MILLIGRAM, ONCE A DAY (80 MG/D)
     Route: 048
     Dates: start: 20240611, end: 20240624
  22. FLUPENTIXOL [Suspect]
     Active Substance: FLUPENTIXOL
     Dosage: 100 MILLIGRAM, ONCE A DAY (100 MG/D)
     Route: 048
     Dates: start: 20240624, end: 20240704
  23. FLUPENTIXOL [Suspect]
     Active Substance: FLUPENTIXOL
     Dosage: 120 MILLIGRAM, ONCE A DAY (120 MG/D)
     Route: 048
     Dates: start: 20240704, end: 20240704
  24. FLUPENTIXOL [Suspect]
     Active Substance: FLUPENTIXOL
     Dosage: 100 MILLIGRAM, ONCE A DAY (100 MG/D)
     Route: 048
     Dates: start: 20240704, end: 20240718
  25. IMOVANE [Suspect]
     Active Substance: ZOPICLONE
     Indication: Insomnia
     Dosage: 7.5 MILLIGRAM, ONCE A DAY (1 TAB/D)
     Route: 048
     Dates: start: 20240511, end: 20240511
  26. IMOVANE [Suspect]
     Active Substance: ZOPICLONE
     Dosage: 3.75 MILLIGRAM, AS NECESSARY (1/2 TEASPOON IF NECESSARY)
     Route: 048
     Dates: start: 20240614
  27. NALOXEGOL OXALATE [Suspect]
     Active Substance: NALOXEGOL OXALATE
     Indication: Constipation
     Dosage: 12.5 MILLIGRAM, ONCE A DAY (25 MG/D)
     Route: 048
     Dates: start: 20240405, end: 20240605
  28. NALOXEGOL OXALATE [Suspect]
     Active Substance: NALOXEGOL OXALATE
     Dosage: 25 MILLIGRAM, ONCE A DAY (25 MG/D)
     Route: 048
     Dates: start: 20240605, end: 20240614
  29. NALOXEGOL OXALATE [Suspect]
     Active Substance: NALOXEGOL OXALATE
     Dosage: 25 MILLIGRAM, ONCE A DAY (25 MG/D)
     Route: 048
     Dates: start: 20240705, end: 20240718
  30. MOVICOL [Suspect]
     Active Substance: POLYETHYLENE GLYCOL 3350\POTASSIUM CHLORIDE\SODIUM BICARBONATE\SODIUM CHLORIDE
     Indication: Constipation
     Dosage: 1 DOSAGE FORM, ONCE A DAY (1 SACHETS/D)
     Route: 048
     Dates: start: 20240115, end: 20240119
  31. MOVICOL [Suspect]
     Active Substance: POLYETHYLENE GLYCOL 3350\POTASSIUM CHLORIDE\SODIUM BICARBONATE\SODIUM CHLORIDE
     Dosage: 2 DOSAGE FORM, ONCE A DAY (2 SACHETS/D)
     Route: 048
     Dates: start: 20240119, end: 20240122
  32. MOVICOL [Suspect]
     Active Substance: POLYETHYLENE GLYCOL 3350\POTASSIUM CHLORIDE\SODIUM BICARBONATE\SODIUM CHLORIDE
     Dosage: 2 DOSAGE FORM, ONCE A DAY ( 2 SACHETS/D)
     Route: 048
     Dates: start: 20240130, end: 20240226
  33. MOVICOL [Suspect]
     Active Substance: POLYETHYLENE GLYCOL 3350\POTASSIUM CHLORIDE\SODIUM BICARBONATE\SODIUM CHLORIDE
     Dosage: 2 DOSAGE FORM, ONCE A DAY (2 SACHETS/D)
     Route: 048
     Dates: start: 20240604, end: 20240626
  34. MOVICOL [Suspect]
     Active Substance: POLYETHYLENE GLYCOL 3350\POTASSIUM CHLORIDE\SODIUM BICARBONATE\SODIUM CHLORIDE
     Dosage: 4 DOSAGE FORM, ONCE A DAY (4 SACHETS/D)
     Route: 048
     Dates: start: 20240626, end: 20240627
  35. SKENAN [Suspect]
     Active Substance: MORPHINE SULFATE
     Indication: Pain
     Dosage: 40 MILLIGRAM, ONCE A DAY (40 MG/D)
     Route: 048
     Dates: start: 20240514, end: 20240524
  36. SKENAN [Suspect]
     Active Substance: MORPHINE SULFATE
     Dosage: 20 MILLIGRAM, ONCE A DAY (20 MG/D)
     Route: 048
     Dates: start: 20240524, end: 20240610
  37. SKENAN [Suspect]
     Active Substance: MORPHINE SULFATE
     Dosage: 15 MILLIGRAM, ONCE A DAY (15 MG/DAY)
     Route: 048
     Dates: start: 20240610, end: 20240610
  38. SKENAN [Suspect]
     Active Substance: MORPHINE SULFATE
     Dosage: 10 MILLIGRAM, ONCE A DAY (10 MG/DAY)
     Route: 048
     Dates: start: 20240610, end: 20240613
  39. SCOPOLAMINE [Suspect]
     Active Substance: SCOPOLAMINE
     Indication: Salivary hypersecretion
     Dosage: 1 DOSAGE FORM (1 PATCH / 72H)
     Route: 062
     Dates: start: 20240629, end: 20240718
  40. CYAMEMAZINE [Suspect]
     Active Substance: CYAMEMAZINE
     Indication: Psychotic disorder
     Dosage: 250 MILLIGRAM, ONCE A DAY (250 MG/D)
     Route: 048
     Dates: start: 20240104, end: 20240112
  41. CYAMEMAZINE [Suspect]
     Active Substance: CYAMEMAZINE
     Dosage: 50 MILLIGRAM, AS NECESSARY ( 50 MG IF NEEDED)
     Route: 048
     Dates: start: 20240112, end: 20240322
  42. CYAMEMAZINE [Suspect]
     Active Substance: CYAMEMAZINE
     Dosage: 30 MILLIGRAM, AS NECESSARY (30 MG IF NEEDED)
     Route: 048
     Dates: start: 20240322, end: 20240511
  43. CYAMEMAZINE [Suspect]
     Active Substance: CYAMEMAZINE
     Dosage: 200 MILLIGRAM, ONCE A DAY(200 MG/D)
     Route: 048
     Dates: start: 20240511, end: 20240708
  44. CYAMEMAZINE [Suspect]
     Active Substance: CYAMEMAZINE
     Dosage: 100 MILLIGRAM, ONCE A DAY (100 MG/D)
     Route: 048
     Dates: start: 20240708, end: 20240711
  45. LIDOCAINE [Suspect]
     Active Substance: LIDOCAINE
     Indication: Pain
     Dosage: 1 DOSAGE FORM, 3 TIMES A DAY (1 DAY OUT OF 3)
     Route: 003
     Dates: start: 20240221, end: 20240514
  46. LIDOCAINE [Suspect]
     Active Substance: LIDOCAINE
     Dosage: 1 DOSAGE FORM, 3 TIMES A DAY (1 DAY OUT OF 3)
     Route: 003
     Dates: start: 20240621, end: 20240718
  47. ABILIFY [Concomitant]
     Active Substance: ARIPIPRAZOLE
     Indication: Pain
     Dosage: 5 MILLIGRAM, ONCE A DAY (5 MG/DAY)
     Route: 048
     Dates: start: 20240119, end: 20240119
  48. ABILIFY [Concomitant]
     Active Substance: ARIPIPRAZOLE
     Dosage: 400 MILLIGRAM (400 MG/MONTH)
     Route: 030
     Dates: start: 20240126, end: 20240515
  49. FERROUS SULFATE [Concomitant]
     Active Substance: FERROUS SULFATE
     Indication: Iron deficiency
     Dosage: 80 MILLIGRAM, ONCE A DAY ( 80 MG/D)
     Route: 048
     Dates: start: 20240119, end: 20240530
  50. OXYCODONE HYDROCHLORIDE [Concomitant]
     Active Substance: OXYCODONE HYDROCHLORIDE
     Indication: Pain
     Dosage: 5 MILLIGRAM, AS NECESSARY (5 MG IF NEEDED)
     Route: 048
     Dates: start: 20240115, end: 20240229
  51. OXYCODONE HYDROCHLORIDE [Concomitant]
     Active Substance: OXYCODONE HYDROCHLORIDE
     Dosage: 5 MILLIGRAM, AS NECESSARY (5 MG IF NEEDED)
     Route: 048
     Dates: start: 20240313, end: 20240514
  52. ACUPAN [Concomitant]
     Active Substance: NEFOPAM HYDROCHLORIDE
     Indication: Pain
     Dosage: 80 MILLIGRAM, ONCE A DAY (80 MG/D)
     Route: 048
     Dates: start: 20240221, end: 20240311
  53. ACUPAN [Concomitant]
     Active Substance: NEFOPAM HYDROCHLORIDE
     Dosage: 20 MILLIGRAM, AS NECESSARY (20 MG IF NEEDED)
     Route: 048
     Dates: start: 20240514, end: 20240530
  54. VALIUM [Concomitant]
     Active Substance: DIAZEPAM
     Indication: Product used for unknown indication
     Dosage: 10 MILLIGRAM, AS NECESSARY (10 MG IF NEEDED)
     Route: 048
     Dates: start: 20240104, end: 20240115
  55. VALIUM [Concomitant]
     Active Substance: DIAZEPAM
     Dosage: 10 MILLIGRAM, ONCE A DAY (10 MG/D)
     Route: 048
     Dates: start: 20240123, end: 20240412
  56. FOLIC ACID [Concomitant]
     Active Substance: FOLIC ACID
     Indication: Folate deficiency
     Dosage: 5 MILLIGRAM, ONCE A DAY (5 MG/DAY)
     Route: 048
     Dates: start: 20240119, end: 20240530
  57. OXYCONTIN [Concomitant]
     Active Substance: OXYCODONE HYDROCHLORIDE
     Indication: Pain
     Dosage: 20 MILLIGRAM, ONCE A DAY (20 MG/D)
     Route: 048
     Dates: start: 20240123, end: 20240514

REACTIONS (1)
  - Hyperprolactinaemia [Recovering/Resolving]

NARRATIVE: CASE EVENT DATE: 20240701
